FAERS Safety Report 6828921-0 (Version None)
Quarter: 2010Q3

REPORT INFORMATION
  Report Type: 
  Country: None (occurrence: None)
  Receive Date: 20100709
  Receipt Date: 20070222
  Transmission Date: 20110219
  Serious: No
  Sender: FDA-Public Use
  Company Number: US-PFIZER INC-2007015005

PATIENT
  Sex: Female
  Weight: 92.53 kg

DRUGS (9)
  1. CHANTIX [Suspect]
     Indication: SMOKING CESSATION THERAPY
     Dates: start: 20070221
  2. VERELAN PM [Concomitant]
     Indication: HYPERTENSION
  3. RISPERDAL [Concomitant]
  4. HERBAL PREPARATION [Concomitant]
  5. PREVACID [Concomitant]
  6. ESTRADIOL [Concomitant]
  7. ZYRTEC [Concomitant]
  8. CHLORDIAZEPOXIDE [Concomitant]
  9. ACETYLSALICYLIC ACID [Concomitant]

REACTIONS (1)
  - VOMITING [None]
